FAERS Safety Report 26162943 (Version 1)
Quarter: 2025Q4

REPORT INFORMATION
  Report Type: Spontaneous
  Country: CA (occurrence: CA)
  Receive Date: 20251216
  Receipt Date: 20251216
  Transmission Date: 20260119
  Serious: Yes (Other)
  Sender: ROCHE
  Company Number: CA-ROCHE-10000459514

PATIENT
  Age: 63 Year
  Sex: Male

DRUGS (2)
  1. SOMATROPIN [Suspect]
     Active Substance: SOMATROPIN
     Indication: Growth hormone deficiency
     Route: 058
  2. SOMATROPIN [Suspect]
     Active Substance: SOMATROPIN
     Route: 058

REACTIONS (6)
  - Erectile dysfunction [Unknown]
  - Headache [Unknown]
  - Hyperacusis [Unknown]
  - Irritability [Unknown]
  - Parosmia [Unknown]
  - Photophobia [Unknown]
